FAERS Safety Report 18642456 (Version 1)
Quarter: 2020Q4

REPORT INFORMATION
  Report Type: Spontaneous
  Country: US (occurrence: US)
  Receive Date: 20201218
  Receipt Date: 20201218
  Transmission Date: 20210114
  Serious: No
  Sender: FDA-Public Use
  Company Number: None

PATIENT
  Age: 21 Year
  Sex: Female
  Weight: 76.5 kg

DRUGS (2)
  1. VENLAFAXINE [Suspect]
     Active Substance: VENLAFAXINE HYDROCHLORIDE
     Indication: GENERALISED ANXIETY DISORDER
     Route: 048
     Dates: start: 20200608, end: 20201218
  2. SYNTHROID BCP [Concomitant]

REACTIONS (7)
  - Hyperhidrosis [None]
  - Dizziness [None]
  - Paraesthesia [None]
  - Nausea [None]
  - Chills [None]
  - Tremor [None]
  - Influenza like illness [None]
